FAERS Safety Report 12414801 (Version 1)
Quarter: 2016Q2

REPORT INFORMATION
  Report Type: Spontaneous
  Country: JP (occurrence: JP)
  Receive Date: 20160529
  Receipt Date: 20160529
  Transmission Date: 20160815
  Serious: Yes (Other)
  Sender: FDA-Public Use
  Company Number: PHJP2016JP013585

PATIENT
  Sex: Male
  Weight: 64 kg

DRUGS (23)
  1. ELTROMBOPAG [Suspect]
     Active Substance: ELTROMBOPAG
     Dosage: 37.5 MG, QD
     Route: 048
  2. ALERTINE//PREDNISOLONE [Concomitant]
     Dosage: 30 MG, QD
     Route: 065
  3. ALERTINE//PREDNISOLONE [Concomitant]
     Dosage: 15 MG, QD
     Route: 065
  4. ALERTINE//PREDNISOLONE [Concomitant]
     Dosage: 17.5 MG, QD
     Route: 065
  5. ALERTINE//PREDNISOLONE [Concomitant]
     Dosage: 12.5 MG, QD
     Route: 065
  6. ALERTINE//PREDNISOLONE [Concomitant]
     Dosage: 11 MG, QD
     Route: 065
  7. ALERTINE//PREDNISOLONE [Concomitant]
     Dosage: 2.5 MG, QD
     Route: 065
  8. ALERTINE//PREDNISOLONE [Concomitant]
     Dosage: 20 MG, QD
     Route: 065
  9. ALERTINE//PREDNISOLONE [Concomitant]
     Dosage: 10 MG, QD
     Route: 065
  10. ELTROMBOPAG [Suspect]
     Active Substance: ELTROMBOPAG
     Indication: IMMUNE THROMBOCYTOPENIC PURPURA
     Dosage: 12.5 MG, QD
     Route: 048
  11. ELTROMBOPAG [Suspect]
     Active Substance: ELTROMBOPAG
     Dosage: 37.5 MG, QD
     Route: 048
  12. ALERTINE//PREDNISOLONE [Concomitant]
     Dosage: 50 MG, QD
     Route: 065
  13. ALERTINE//PREDNISOLONE [Concomitant]
     Dosage: 10 MG, QD
     Route: 065
  14. ALERTINE//PREDNISOLONE [Concomitant]
     Dosage: 12 MG, QD
     Route: 065
  15. ALERTINE//PREDNISOLONE [Concomitant]
     Dosage: 7 MG, QD
     Route: 065
  16. ELTROMBOPAG [Suspect]
     Active Substance: ELTROMBOPAG
     Dosage: 25 MG, QD
     Route: 048
  17. ELTROMBOPAG [Suspect]
     Active Substance: ELTROMBOPAG
     Dosage: 50 MG, QD
     Route: 048
  18. ALERTINE//PREDNISOLONE [Concomitant]
     Indication: PRODUCT USED FOR UNKNOWN INDICATION
     Dosage: 60 MG, QD
     Route: 065
  19. ALERTINE//PREDNISOLONE [Concomitant]
     Dosage: 5 MG, QD
     Route: 065
  20. ALERTINE//PREDNISOLONE [Concomitant]
     Dosage: 6 MG, QD
     Route: 065
  21. ALERTINE//PREDNISOLONE [Concomitant]
     Dosage: 8 MG, QD
     Route: 065
  22. ALERTINE//PREDNISOLONE [Concomitant]
     Dosage: 25 MG, QD
     Route: 065
  23. ALERTINE//PREDNISOLONE [Concomitant]
     Dosage: 15 MG, QD
     Route: 065

REACTIONS (3)
  - Cardiac failure [Unknown]
  - Shunt occlusion [Unknown]
  - Peripheral arterial occlusive disease [Unknown]
